FAERS Safety Report 5628280-5 (Version None)
Quarter: 2008Q1

REPORT INFORMATION
  Report Type: 
  Country: None (occurrence: None)
  Receive Date: 20080131
  Receipt Date: 20071206
  Transmission Date: 20080703
  Serious: No
  Sender: FDA-Public Use
  Company Number: 163-21880-07111304

PATIENT
  Age: 73 Year
  Sex: Female

DRUGS (2)
  1. REVLIMID [Suspect]
     Indication: CHRONIC LYMPHOCYTIC LEUKAEMIA
     Dosage: 25 MG, DAILY FOR THREE WEEKS, ORAL; 10 MG, DAILY FOR THREE WEEKS, ORAL
     Route: 048
     Dates: start: 20071018, end: 20071101
  2. REVLIMID [Suspect]
     Indication: CHRONIC LYMPHOCYTIC LEUKAEMIA
     Dosage: 25 MG, DAILY FOR THREE WEEKS, ORAL; 10 MG, DAILY FOR THREE WEEKS, ORAL
     Route: 048
     Dates: start: 20071120

REACTIONS (4)
  - BODY TEMPERATURE INCREASED [None]
  - DIZZINESS [None]
  - FATIGUE [None]
  - MUSCLE SPASMS [None]
